FAERS Safety Report 23343742 (Version 2)
Quarter: 2024Q1

REPORT INFORMATION
  Report Type: Spontaneous
  Country: US (occurrence: US)
  Receive Date: 20231227
  Receipt Date: 20240126
  Transmission Date: 20240409
  Serious: No
  Sender: FDA-Public Use
  Company Number: US-PFIZER INC-PV202300203690

PATIENT
  Age: 36 Year
  Sex: Male
  Weight: 83.9 kg

DRUGS (1)
  1. DOXYCYCLINE HYCLATE [Suspect]
     Active Substance: DOXYCYCLINE HYCLATE
     Indication: Latent syphilis
     Dosage: UNK, 2X/DAY

REACTIONS (1)
  - Drug ineffective [Not Recovered/Not Resolved]
